FAERS Safety Report 15978543 (Version 1)
Quarter: 2019Q1

REPORT INFORMATION
  Report Type: Spontaneous
  Country: SE (occurrence: SE)
  Receive Date: 20190219
  Receipt Date: 20190219
  Transmission Date: 20190418
  Serious: Yes (Hospitalization, Other)
  Sender: FDA-Public Use
  Company Number: SE-STRIDES ARCOLAB LIMITED-2019SP001093

PATIENT
  Age: 35 Year
  Sex: Female

DRUGS (23)
  1. FERROUS GLUCONATE [Suspect]
     Active Substance: FERROUS GLUCONATE
     Indication: HAEMOGLOBIN DECREASED
     Dosage: 100 MG, BID
     Route: 048
  2. LABETALOL [Suspect]
     Active Substance: LABETALOL\LABETALOL HYDROCHLORIDE
     Indication: PRE-ECLAMPSIA
     Dosage: 200 MG, TID
     Route: 048
  3. TACROLIMUS. [Suspect]
     Active Substance: TACROLIMUS
     Dosage: 10 MG DAILY
     Route: 065
  4. SOLU-MEDROL [Suspect]
     Active Substance: METHYLPREDNISOLONE SODIUM SUCCINATE
     Indication: TRANSPLANT
     Dosage: 500 MG, SINGLE
     Route: 042
  5. SOLU-MEDROL [Suspect]
     Active Substance: METHYLPREDNISOLONE SODIUM SUCCINATE
     Dosage: 125 MG ON DAYS TWO AND THREE
     Route: 042
  6. ACETYLSALICYLIC ACID [Suspect]
     Active Substance: ASPIRIN
     Indication: PRODUCT USED FOR UNKNOWN INDICATION
     Dosage: 75 MG, QD
     Route: 065
  7. AZATHIOPRINE. [Suspect]
     Active Substance: AZATHIOPRINE
     Indication: TRANSPLANT
     Dosage: 2 MG/KG PER DAY
     Route: 065
  8. SOLU-MEDROL [Suspect]
     Active Substance: METHYLPREDNISOLONE SODIUM SUCCINATE
     Indication: TRANSPLANT REJECTION
     Dosage: 500 MG, UNKNOWN
     Route: 042
  9. TACROLIMUS. [Suspect]
     Active Substance: TACROLIMUS
     Indication: TRANSPLANT
     Dosage: UNK
     Route: 048
  10. FERROUS GLUCONATE [Suspect]
     Active Substance: FERROUS GLUCONATE
     Dosage: 500 MG ONE DOSE
     Route: 042
  11. FOLIC ACID. [Suspect]
     Active Substance: FOLIC ACID
     Indication: PRODUCT USED FOR UNKNOWN INDICATION
     Dosage: 250 MCG, BID
     Route: 048
  12. ARANESP [Suspect]
     Active Substance: DARBEPOETIN ALFA
     Indication: PRODUCT USED FOR UNKNOWN INDICATION
     Dosage: 60 MCG WEEKLY
     Route: 058
  13. LUTINUS [Suspect]
     Active Substance: PROGESTERONE
     Indication: PRODUCT USED FOR UNKNOWN INDICATION
     Dosage: 100 MG, TID
     Route: 067
  14. NIFEDIPINE. [Suspect]
     Active Substance: NIFEDIPINE
     Indication: PRE-ECLAMPSIA
     Dosage: 10 MG, BID
     Route: 048
  15. MYCOPHENOLATE MOFETIL. [Suspect]
     Active Substance: MYCOPHENOLATE MOFETIL
     Indication: TRANSPLANT
     Dosage: UNK
     Route: 048
  16. PREDNISOLONE. [Suspect]
     Active Substance: PREDNISOLONE
     Indication: TRANSPLANT REJECTION
     Dosage: 5 MG DAILY
     Route: 048
  17. AZATHIOPRINE. [Suspect]
     Active Substance: AZATHIOPRINE
     Dosage: 2 MG/KG PER DAY
     Route: 065
  18. PREDNISOLONE. [Suspect]
     Active Substance: PREDNISOLONE
     Indication: TRANSPLANT
     Dosage: 10 MG, BID
     Route: 048
  19. SOLU-MEDROL [Suspect]
     Active Substance: METHYLPREDNISOLONE SODIUM SUCCINATE
     Dosage: 250 MG ON DAY ONE
     Route: 042
  20. BETAMETHASONE. [Suspect]
     Active Substance: BETAMETHASONE
     Indication: NEONATAL RESPIRATORY DISTRESS SYNDROME PROPHYLAXIS
     Dosage: 12 MG, UNKNOWN
     Route: 042
  21. AZATHIOPRINE. [Suspect]
     Active Substance: AZATHIOPRINE
     Dosage: 1.2 MG/KG PER DAY
     Route: 065
  22. TACROLIMUS. [Suspect]
     Active Substance: TACROLIMUS
     Dosage: GRADUALLY INCREASED TO 40% OF THE PRE-PREGNANCY DOSE (WHICH WAS 10 MG DAILY)
     Route: 065
  23. THYMOGLOBULIN [Suspect]
     Active Substance: LAPINE T-LYMPHOCYTE IMMUNE GLOBULIN
     Indication: TRANSPLANT
     Dosage: 2.5 MG/KG, UNKNOWN
     Route: 042

REACTIONS (9)
  - Exposure during pregnancy [Unknown]
  - Leukopenia [Recovered/Resolved]
  - Off label use [Unknown]
  - Premature delivery [Unknown]
  - Blood creatinine increased [Recovered/Resolved]
  - Proteinuria [Recovered/Resolved]
  - Headache [Recovered/Resolved]
  - Pre-eclampsia [Recovered/Resolved]
  - Anaemia [Recovered/Resolved]
